FAERS Safety Report 8951191 (Version 1)
Quarter: 2012Q4

REPORT INFORMATION
  Report Type: 
  Country: BR (occurrence: BR)
  Receive Date: 20121207
  Receipt Date: 20121207
  Transmission Date: 20130627
  Serious: Yes (Other)
  Sender: FDA-Public Use
  Company Number: PHHY2012BR109751

PATIENT
  Age: 52 Year
  Sex: Female

DRUGS (1)
  1. DIOVAN HCT [Suspect]
     Indication: HYPERTENSION
     Dosage: 1 DF, Daily
     Route: 048
     Dates: start: 2010

REACTIONS (8)
  - Poor peripheral circulation [Recovered/Resolved]
  - Coagulopathy [Recovered/Resolved]
  - Vein discolouration [Not Recovered/Not Resolved]
  - Pain in extremity [Not Recovered/Not Resolved]
  - Gait disturbance [Not Recovered/Not Resolved]
  - Blood viscosity increased [Recovered/Resolved]
  - Irritability [Not Recovered/Not Resolved]
  - Oedema peripheral [Recovering/Resolving]
